FAERS Safety Report 21129096 (Version 3)
Quarter: 2022Q3

REPORT INFORMATION
  Report Type: Spontaneous
  Country: CA (occurrence: CA)
  Receive Date: 20220725
  Receipt Date: 20220826
  Transmission Date: 20221027
  Serious: Yes (Other)
  Sender: FDA-Public Use
  Company Number: CA-PFIZER INC-2021530799

PATIENT
  Age: 57 Year
  Sex: Male
  Weight: 104.5 kg

DRUGS (5)
  1. RUXIENCE [Suspect]
     Active Substance: RITUXIMAB-PVVR
     Indication: Rheumatoid arthritis
     Dosage: 1000 MG, WEEK 0 AND WEEK 2
     Route: 042
     Dates: start: 20210505, end: 20220519
  2. RUXIENCE [Suspect]
     Active Substance: RITUXIMAB-PVVR
     Dosage: 1000 MG WEEK 0 AND WEEK 2
     Route: 042
     Dates: start: 20211118, end: 20211202
  3. METHOTREXATE [Concomitant]
     Active Substance: METHOTREXATE
     Dosage: 25 MG, WEEKLY
     Route: 065
  4. NAPROXEN [Concomitant]
     Active Substance: NAPROXEN
  5. PREDNISONE [Concomitant]
     Active Substance: PREDNISONE
     Dosage: 5 MG, 1X/DAY
     Route: 048

REACTIONS (4)
  - Nephrolithiasis [Unknown]
  - Occult blood positive [Unknown]
  - Vertigo [Unknown]
  - Nasal congestion [Unknown]
